FAERS Safety Report 4345957-2 (Version None)
Quarter: 2004Q2

REPORT INFORMATION
  Report Type: 
  Country: None (occurrence: None)
  Receive Date: 20040420
  Receipt Date: 20040415
  Transmission Date: 20050107
  Serious: Yes (Death, Hospitalization)
  Sender: FDA-Public Use
  Company Number: F01200400775

PATIENT
  Age: 61 Year
  Sex: Male

DRUGS (13)
  1. (OXALIPLATIN) - SOLUTION - 244 MG [Suspect]
     Indication: COLORECTAL CANCER METASTATIC
     Dosage: 244 MG Q3W, INTRAVENOUS NOS
     Route: 042
  2. (CAPECITABINE)  - TABLET - 1800 MG [Suspect]
     Dosage: 1800 MG TWICE DAILY FROM D1 TO D14, ORAL
     Route: 048
     Dates: end: 20040323
  3. ONDANSETRON HCL [Concomitant]
  4. DECADRON [Concomitant]
  5. K-DUR 10 [Concomitant]
  6. FISH OIL CAPSULES (FISH OIL, HYDROGENATED) [Concomitant]
  7. CIPROFLOXACIN HCL [Concomitant]
  8. TYLENOL [Concomitant]
  9. MULTI-VITAMINS [Concomitant]
  10. VITAMIN C [Concomitant]
  11. CODEINE [Concomitant]
  12. GARLIC TABLETS(GARLIC) [Concomitant]
  13. IMODIUM [Concomitant]

REACTIONS (15)
  - ASTHENIA [None]
  - BRADYCARDIA [None]
  - CARDIO-RESPIRATORY ARREST [None]
  - DEEP VEIN THROMBOSIS [None]
  - DEHYDRATION [None]
  - DIARRHOEA [None]
  - FLANK PAIN [None]
  - GASTROINTESTINAL ISCHAEMIA [None]
  - HYPERVENTILATION [None]
  - HYPOTENSION [None]
  - LACTIC ACIDOSIS [None]
  - MALAISE [None]
  - METABOLIC ACIDOSIS [None]
  - NAUSEA [None]
  - TACHYPNOEA [None]
